FAERS Safety Report 4469356-8 (Version None)
Quarter: 2004Q4

REPORT INFORMATION
  Report Type: 
  Country: None (occurrence: None)
  Receive Date: 20041008
  Receipt Date: 20040212
  Transmission Date: 20050328
  Serious: No
  Sender: FDA-Public Use
  Company Number: US-BRISTOL-MYERS SQUIBB COMPANY-12504171

PATIENT
  Age: 64 Year
  Sex: Female
  Weight: 91 kg

DRUGS (1)
  1. AVAPRO [Suspect]
     Indication: HYPERTENSION
     Dosage: WAS TAKING 150MG FOR 6 WEEKS PRIOR TO STARTING 300MG
     Route: 048
     Dates: start: 20031001, end: 20040127

REACTIONS (1)
  - DRUG INEFFECTIVE [None]
